FAERS Safety Report 8217229-7 (Version None)
Quarter: 2012Q1

REPORT INFORMATION
  Report Type: 
  Country: None (occurrence: None)
  Receive Date: 20120319
  Receipt Date: 20120312
  Transmission Date: 20120608
  Serious: No
  Sender: FDA-Public Use
  Company Number: US-PFIZER INC-2012066973

PATIENT
  Sex: Female

DRUGS (1)
  1. LATANOPROST [Suspect]

REACTIONS (1)
  - EYE IRRITATION [None]
